FAERS Safety Report 5149518-7 (Version None)
Quarter: 2006Q4

REPORT INFORMATION
  Report Type: 
  Country: None (occurrence: None)
  Receive Date: 20061113
  Receipt Date: 20060307
  Transmission Date: 20070319
  Serious: No
  Sender: FDA-Public Use
  Company Number: 439597

PATIENT
  Sex: Male

DRUGS (2)
  1. COREG [Suspect]
     Indication: HYPERTENSION
     Route: 048
     Dates: start: 20060201
  2. PLAVIX [Concomitant]

REACTIONS (1)
  - PRURITUS [None]
